FAERS Safety Report 5748569-9 (Version None)
Quarter: 2008Q2

REPORT INFORMATION
  Report Type: 
  Country: None (occurrence: None)
  Receive Date: 20080521
  Receipt Date: 20080505
  Transmission Date: 20081010
  Serious: Yes (Hospitalization, Other)
  Sender: FDA-Public Use
  Company Number: 2008AL003471

PATIENT
  Age: 78 Year
  Sex: Male
  Weight: 55.3388 kg

DRUGS (1)
  1. DIGOXIN [Suspect]
     Indication: CARDIAC DISORDER
     Dosage: 0.125 MG, PO
     Route: 048

REACTIONS (4)
  - BLOOD PRESSURE DECREASED [None]
  - DIALYSIS [None]
  - RENAL FAILURE [None]
  - TREMOR [None]
